FAERS Safety Report 15128707 (Version 1)
Quarter: 2018Q3

REPORT INFORMATION
  Report Type: Spontaneous
  Country: US (occurrence: US)
  Receive Date: 20180711
  Receipt Date: 20180711
  Transmission Date: 20181010
  Serious: No
  Sender: FDA-Public Use
  Company Number: US-BIOGEN-2018BI00606712

PATIENT
  Sex: Female
  Weight: 58.57 kg

DRUGS (1)
  1. TECFIDERA [Suspect]
     Active Substance: DIMETHYL FUMARATE
     Indication: MULTIPLE SCLEROSIS
     Route: 048

REACTIONS (7)
  - Asthenia [Unknown]
  - Somnambulism [Unknown]
  - Multiple sclerosis relapse [Unknown]
  - Headache [Unknown]
  - Memory impairment [Unknown]
  - Fall [Recovered/Resolved]
  - Retching [Unknown]
